FAERS Safety Report 6648147-3 (Version None)
Quarter: 2010Q1

REPORT INFORMATION
  Report Type: 
  Country: None (occurrence: None)
  Receive Date: 20100324
  Receipt Date: 20100315
  Transmission Date: 20100710
  Serious: Yes (Hospitalization)
  Sender: FDA-Public Use
  Company Number: FR-BRISTOL-MYERS SQUIBB COMPANY-15027550

PATIENT
  Age: 78 Year
  Sex: Female
  Weight: 60 kg

DRUGS (10)
  1. GLUCOPHAGE [Suspect]
     Indication: TYPE 2 DIABETES MELLITUS
     Route: 048
     Dates: start: 19950101, end: 20091113
  2. KARDEGIC [Concomitant]
     Dosage: TABS
     Route: 048
  3. SEROPLEX [Concomitant]
     Dosage: TABS
     Route: 048
  4. DIAMICRON [Concomitant]
     Dates: end: 20091110
  5. TRIATEC [Concomitant]
     Dates: end: 20091110
  6. IMOVANE [Concomitant]
     Dates: end: 20091110
  7. ZANIDIP [Concomitant]
     Dates: end: 20091110
  8. FIXICAL [Concomitant]
     Dates: end: 20091110
  9. FOSAMAX [Concomitant]
     Dates: end: 20091110
  10. ALDACTONE [Concomitant]
     Dates: end: 20091110

REACTIONS (4)
  - ANAEMIA [None]
  - CARDIAC FAILURE [None]
  - LACTIC ACIDOSIS [None]
  - RENAL FAILURE [None]
